FAERS Safety Report 6499743-8 (Version None)
Quarter: 2009Q4

REPORT INFORMATION
  Report Type: 
  Country: None (occurrence: None)
  Receive Date: 20091215
  Receipt Date: 20091114
  Transmission Date: 20100525
  Serious: No
  Sender: FDA-Public Use
  Company Number: US-BAYER-200941614GPV

PATIENT
  Age: 62 Year
  Sex: Male

DRUGS (8)
  1. ALEMTUZUMAB [Suspect]
     Indication: NATURAL KILLER-CELL LYMPHOBLASTIC LYMPHOMA
     Dosage: TOTAL DAILY DOSE: 10 MG
     Route: 058
  2. ALEMTUZUMAB [Suspect]
     Dosage: TOTAL DAILY DOSE: 10 MG
     Route: 058
  3. ALEMTUZUMAB [Suspect]
     Dosage: TOTAL DAILY DOSE: 10 MG
     Route: 058
  4. OPIOIDS [Concomitant]
     Indication: PAIN IN EXTREMITY
  5. SULFAMETHOXAZOLE AND TRIMETHOPRIM [Concomitant]
     Indication: ANTIFUNGAL PROPHYLAXIS
  6. ACYCLOVIR [Concomitant]
     Indication: ANTIVIRAL PROPHYLAXIS
  7. CORTICOSTEROIDS [Concomitant]
     Indication: NATURAL KILLER-CELL LYMPHOBLASTIC LYMPHOMA
  8. METHOTREXATE [Concomitant]
     Indication: NATURAL KILLER-CELL LYMPHOBLASTIC LYMPHOMA

REACTIONS (1)
  - CYTOMEGALOVIRUS VIRAEMIA [None]
